FAERS Safety Report 5191921-3 (Version None)
Quarter: 2006Q4

REPORT INFORMATION
  Report Type: 
  Country: None (occurrence: None)
  Receive Date: 20061227
  Receipt Date: 20060724
  Transmission Date: 20070319
  Serious: Yes (Other)
  Sender: FDA-Public Use
  Company Number: US-AVENTIS-200616220US

PATIENT
  Sex: Female
  Weight: 61 kg

DRUGS (36)
  1. LOVENOX [Suspect]
     Indication: THROMBOSIS
     Dates: start: 20060519, end: 20060901
  2. LOVENOX [Suspect]
     Route: 058
     Dates: start: 20060818, end: 20060901
  3. GEMZAR                             /01215701/ [Suspect]
     Indication: LUNG NEOPLASM MALIGNANT
     Dosage: DOSE: 1700MG COURSE 1,DAY 1
     Dates: start: 20060519, end: 20060519
  4. GEMZAR                             /01215701/ [Suspect]
     Dosage: DOSE: 1700MG COURSE 1, DAY 8
     Dates: start: 20060526, end: 20060526
  5. GEMZAR                             /01215701/ [Suspect]
     Dosage: DOSE: COURSE 2, DAY 1
     Dates: start: 20060609, end: 20060609
  6. GEMZAR                             /01215701/ [Suspect]
     Dosage: DOSE: COURSE 2 ,DAY 8
     Dates: start: 20060616, end: 20060616
  7. GEMZAR                             /01215701/ [Suspect]
     Dosage: DOSE: COURSE 3, DAY 1
     Dates: start: 20060630, end: 20060630
  8. GEMZAR                             /01215701/ [Suspect]
     Dosage: DOSE: COURSE 3, DAY 8
     Dates: start: 20060707, end: 20060707
  9. GEMZAR                             /01215701/ [Suspect]
     Dosage: DOSE: COURSE 4, DAY 1
     Dates: start: 20060728, end: 20060728
  10. GEMZAR                             /01215701/ [Suspect]
     Dosage: DOSE: COURE 3, DAY 8
     Dates: start: 20060804, end: 20060804
  11. CARBOPLATIN [Suspect]
     Indication: LUNG NEOPLASM MALIGNANT
     Dosage: DOSE: 650MG COURSE 1, DAY 1
     Dates: start: 20060519, end: 20060519
  12. CARBOPLATIN [Suspect]
     Dosage: DOSE: 650MG COURSE 2
     Dates: start: 20060609, end: 20060609
  13. CARBOPLATIN [Suspect]
     Dosage: DOSE: COURSE 3
     Dates: start: 20060630, end: 20060630
  14. CARBOPLATIN [Suspect]
     Dosage: DOSE: COURSE 4
     Dates: start: 20060728, end: 20060728
  15. PREVACID [Concomitant]
     Dates: start: 20061023
  16. PROZAC [Concomitant]
     Dosage: DOSE: UNK
  17. AMBIEN [Concomitant]
  18. ATIVAN [Concomitant]
     Indication: ANXIETY
  19. ZOFRAN [Concomitant]
  20. STOOL SOFTENER [Concomitant]
     Dosage: DOSE: 2 TABLETS
  21. MILK OF MAGNESIUM [Concomitant]
     Dosage: DOSE: UNK
  22. COMPAZINE [Concomitant]
     Indication: NAUSEA
  23. ZOVIRAX [Concomitant]
     Indication: HERPES SIMPLEX
     Dosage: DOSE: 5 TIMES DAILY
  24. OXYCODONE HCL [Concomitant]
  25. MS IR [Concomitant]
     Dates: end: 20060901
  26. MS IR [Concomitant]
  27. MS IR [Concomitant]
     Dates: start: 20060823
  28. DILAUDID                           /00080902/ [Concomitant]
     Dosage: DOSE: 1MG/HR VIA PCA PUMP
     Dates: start: 20060901, end: 20061018
  29. DILAUDID                           /00080902/ [Concomitant]
     Dates: start: 20061018
  30. BENADRYL                           /00000402/ [Concomitant]
     Dates: start: 20060920
  31. MEGACE [Concomitant]
     Dates: start: 20061018
  32. ALDACTONE [Concomitant]
     Dates: start: 20061018
  33. ARIXTRA [Concomitant]
     Route: 058
     Dates: start: 20060913
  34. VENOFER [Concomitant]
     Dosage: DOSE: UNK
  35. ARANESP [Concomitant]
  36. PREDNISONE TAB [Concomitant]
     Dates: start: 20060920

REACTIONS (11)
  - ABDOMINAL PAIN UPPER [None]
  - DYSPNOEA EXERTIONAL [None]
  - FATIGUE [None]
  - HYPOAESTHESIA ORAL [None]
  - LIVER FUNCTION TEST ABNORMAL [None]
  - PAIN [None]
  - PALPITATIONS [None]
  - PANCYTOPENIA [None]
  - PLEURAL DISORDER [None]
  - SOMNOLENCE [None]
  - TUMOUR MARKER INCREASED [None]
